FAERS Safety Report 16735400 (Version 1)
Quarter: 2019Q4

REPORT INFORMATION
  Report Type: Spontaneous
  Country: US (occurrence: US)
  Receive Date: 20190823
  Receipt Date: 20190823
  Transmission Date: 20200122
  Serious: Yes (Other)
  Sender: FDA-Public Use
  Company Number: None

PATIENT
  Age: 72 Year
  Sex: Male
  Weight: 68.02 kg

DRUGS (1)
  1. COL OPTIC WHITE PROF KIT IN-OFFICE (35% HYDROGEN PEROXIDE) [Suspect]
     Active Substance: HYDROGEN PEROXIDE
     Dates: start: 20190718, end: 20190718

REACTIONS (5)
  - Gingival pain [None]
  - Lip swelling [None]
  - Swelling face [None]
  - Oral discomfort [None]
  - Gingival discomfort [None]

NARRATIVE: CASE EVENT DATE: 20190718
